FAERS Safety Report 20195929 (Version 1)
Quarter: 2021Q4

REPORT INFORMATION
  Report Type: Spontaneous
  Country: GB (occurrence: GB)
  Receive Date: 20211216
  Receipt Date: 20211216
  Transmission Date: 20220303
  Serious: Yes (Other)
  Sender: FDA-Public Use
  Company Number: None

PATIENT
  Sex: Female

DRUGS (3)
  1. PREDNISOLONE [Suspect]
     Active Substance: PREDNISOLONE
     Indication: Maternal exposure timing unspecified
     Dosage: UNK
     Route: 065
  2. CETIRIZINE HYDROCHLORIDE [Suspect]
     Active Substance: CETIRIZINE HYDROCHLORIDE
     Indication: Maternal exposure timing unspecified
     Dosage: UNK
     Route: 065
  3. OMALIZUMAB [Suspect]
     Active Substance: OMALIZUMAB
     Indication: Maternal exposure timing unspecified
     Dosage: UNK
     Route: 064

REACTIONS (7)
  - Auditory neuropathy spectrum disorder [Unknown]
  - Neonatal hypoacusis [Unknown]
  - Deafness neurosensory [Unknown]
  - Pregnancy [Unknown]
  - Head deformity [Unknown]
  - Strabismus [Unknown]
  - Hyperreflexia [Unknown]
